FAERS Safety Report 15593189 (Version 3)
Quarter: 2019Q2

REPORT INFORMATION
  Report Type: Spontaneous
  Country: US (occurrence: US)
  Receive Date: 20181107
  Receipt Date: 20190514
  Transmission Date: 20190711
  Serious: Yes (Hospitalization, Other)
  Sender: FDA-Public Use
  Company Number: US-PFIZER INC-2018444508

PATIENT
  Age: 65 Year
  Sex: Male
  Weight: 104.3 kg

DRUGS (2)
  1. PHENYTOIN SODIUM. [Suspect]
     Active Substance: PHENYTOIN SODIUM
     Dosage: 600 MG, 1X/DAY, (100 MG, 6 CAPS, PO (PER ORAL), QD(ONCE A DAY))
     Route: 048
  2. PHENYTOIN SODIUM. [Suspect]
     Active Substance: PHENYTOIN SODIUM
     Indication: SEIZURE
     Dosage: 100 MG, 1X/DAY
     Route: 048

REACTIONS (5)
  - Drug ineffective [Recovered/Resolved]
  - Malaise [Unknown]
  - Diabetic coma [Recovered/Resolved]
  - Drug hypersensitivity [Unknown]
  - Drug level decreased [Unknown]
